FAERS Safety Report 10722213 (Version 1)
Quarter: 2015Q1

REPORT INFORMATION
  Report Type: Spontaneous
  Country: US (occurrence: US)
  Receive Date: 20150119
  Receipt Date: 20150119
  Transmission Date: 20150721
  Serious: Yes (Other)
  Sender: FDA-Public Use
  Company Number: US-PFIZER INC-2015014791

PATIENT
  Age: 35 Year
  Sex: Male
  Weight: 111 kg

DRUGS (4)
  1. LYRICA [Suspect]
     Active Substance: PREGABALIN
     Dosage: 200 MG, 3X/DAY
  2. ABILIFY [Concomitant]
     Active Substance: ARIPIPRAZOLE
     Dosage: 30 MG, 1X/DAY
  3. LYRICA [Suspect]
     Active Substance: PREGABALIN
     Dosage: 75 MG, UNK (ONE OR TWO A DAY)
  4. GABAPENTIN. [Concomitant]
     Active Substance: GABAPENTIN
     Dosage: 300 MG, 2X/DAY

REACTIONS (5)
  - Foot fracture [Unknown]
  - Neuralgia [Unknown]
  - Diabetic neuropathy [Unknown]
  - Diabetes mellitus [Unknown]
  - Nerve injury [Unknown]

NARRATIVE: CASE EVENT DATE: 2013
